FAERS Safety Report 11191819 (Version 5)
Quarter: 2015Q3

REPORT INFORMATION
  Report Type: Report from Study
  Country: US (occurrence: US)
  Receive Date: 20150616
  Receipt Date: 20150930
  Transmission Date: 20151125
  Serious: Yes (Hospitalization, Other)
  Sender: FDA-Public Use
  Company Number: US-AMGEN-USASL2014098197

PATIENT
  Age: 36 Year
  Sex: Female

DRUGS (1)
  1. ENBREL [Suspect]
     Active Substance: ETANERCEPT
     Indication: RHEUMATOID ARTHRITIS
     Dosage: 50 MG, QWK
     Route: 065
     Dates: start: 20140620

REACTIONS (9)
  - Cough [Recovered/Resolved]
  - Tendon sheath incision [Unknown]
  - Rheumatoid arthritis [Unknown]
  - Skin lesion [Unknown]
  - Somnolence [Not Recovered/Not Resolved]
  - Carpal tunnel decompression [Unknown]
  - Fatigue [Not Recovered/Not Resolved]
  - Mastitis [Not Recovered/Not Resolved]
  - Pyrexia [Not Recovered/Not Resolved]

NARRATIVE: CASE EVENT DATE: 2014
